FAERS Safety Report 10238298 (Version 1)
Quarter: 2014Q2

REPORT INFORMATION
  Report Type: Spontaneous
  Country: US (occurrence: US)
  Receive Date: 20140616
  Receipt Date: 20140616
  Transmission Date: 20141212
  Serious: No
  Sender: FDA-Public Use
  Company Number: US-PFIZER INC-2014163616

PATIENT
  Age: 49 Year
  Sex: Female
  Weight: 72.56 kg

DRUGS (2)
  1. CELEBREX [Suspect]
     Indication: ARTHRITIS
     Dosage: UNK, 2X/DAY
     Route: 048
     Dates: start: 2006, end: 2006
  2. OXYCONTIN [Concomitant]
     Dosage: UNK

REACTIONS (3)
  - Hypersensitivity [Unknown]
  - Joint swelling [Unknown]
  - Hypertension [Unknown]
